FAERS Safety Report 9889618 (Version 2)
Quarter: 2014Q1

REPORT INFORMATION
  Report Type: Spontaneous
  Country: US (occurrence: US)
  Receive Date: 20140211
  Receipt Date: 20140211
  Transmission Date: 20141002
  Serious: Yes (Disabling)
  Sender: FDA-Public Use
  Company Number: US-GE HEALTHCARE MEDICAL DIAGNOSTICS-OSCN-PR-0902S-0068

PATIENT
  Sex: Female

DRUGS (31)
  1. GADOLINIUM (UNSPECIFIED) [Suspect]
     Indication: PRODUCT USED FOR UNKNOWN INDICATION
     Route: 042
     Dates: start: 20030513, end: 20030513
  2. MAGNEVIST [Suspect]
     Indication: PRODUCT USED FOR UNKNOWN INDICATION
     Route: 042
     Dates: start: 20020221, end: 20020221
  3. MAGNEVIST [Suspect]
     Route: 042
     Dates: start: 20040113, end: 20040113
  4. MAGNEVIST [Suspect]
     Route: 042
     Dates: start: 20040618, end: 20040618
  5. MAGNEVIST [Suspect]
     Route: 042
     Dates: start: 20040621, end: 20040621
  6. MAGNEVIST [Suspect]
     Route: 042
     Dates: start: 20040819, end: 20040819
  7. MAGNEVIST [Suspect]
     Route: 042
     Dates: start: 20040826, end: 20040826
  8. MAGNEVIST [Suspect]
     Route: 042
     Dates: start: 20050104, end: 20050104
  9. MAGNEVIST [Suspect]
     Route: 042
     Dates: start: 20050414, end: 20050414
  10. FLUDROCORTISONE [Concomitant]
  11. SYNTHROID [Concomitant]
  12. RENAGEL [Concomitant]
  13. WARFARIN [Concomitant]
  14. DIAZEPAM [Concomitant]
  15. SIMVASTATIN [Concomitant]
  16. MORPHINE [Concomitant]
  17. LITHIUM [Concomitant]
  18. ABILIFY [Concomitant]
  19. GABITRIL [Concomitant]
  20. VENLAFAXINE [Concomitant]
  21. EPOGEN [Concomitant]
  22. CALCITROL [Concomitant]
  23. TACROLIMUS [Concomitant]
  24. METOPROLOL [Concomitant]
  25. CELLCEPT [Concomitant]
  26. PROGRAF [Concomitant]
  27. CLONIDINE [Concomitant]
  28. NORVASC [Concomitant]
  29. PHOSLO [Concomitant]
  30. CARDURA [Concomitant]
  31. PROCARDIA [Concomitant]

REACTIONS (1)
  - Nephrogenic systemic fibrosis [Not Recovered/Not Resolved]
